FAERS Safety Report 21696243 (Version 2)
Quarter: 2022Q4

REPORT INFORMATION
  Report Type: Spontaneous
  Country: US (occurrence: US)
  Receive Date: 20221207
  Receipt Date: 20221216
  Transmission Date: 20230113
  Serious: Yes (Death, Hospitalization, Other)
  Sender: FDA-Public Use
  Company Number: US-009507513-2212USA002349

PATIENT
  Sex: Male
  Weight: 115 kg

DRUGS (12)
  1. KEYTRUDA [Suspect]
     Active Substance: PEMBROLIZUMAB
     Indication: Lung neoplasm malignant
     Dosage: 200 MG/ EVERY 21 DAYS OR EVERY 3 WEEKS
     Route: 042
     Dates: start: 20220912, end: 20221017
  2. ZOMETA [Concomitant]
     Active Substance: ZOLEDRONIC ACID
  3. HYDROCODONE [Concomitant]
     Active Substance: HYDROCODONE
     Dosage: 5/32 MG
  4. ALBUTEROL SULFATE [Concomitant]
     Active Substance: ALBUTEROL SULFATE
     Dosage: UNK, Q6H
  5. VENTOLIN HFA [Concomitant]
     Active Substance: ALBUTEROL SULFATE
     Dosage: 2 PUFFS, Q6H
  6. FLONASE [Concomitant]
     Active Substance: FLUTICASONE PROPIONATE
     Dosage: UNK, QD
  7. AMITRIPTYLINE [Concomitant]
     Active Substance: AMITRIPTYLINE
     Dosage: 25, AT BED TIIME
  8. PIROXICAM [Concomitant]
     Active Substance: PIROXICAM
     Dosage: 220 MILLIGRAM, QD
  9. TRILOG [Concomitant]
     Dosage: 1-/62.5-25 MG/ ONE PUFF DAILY
  10. ACETAMINOPHEN\TRAMADOL HYDROCHLORIDE [Concomitant]
     Active Substance: ACETAMINOPHEN\TRAMADOL HYDROCHLORIDE
     Dosage: 50 MILLIGRAM, Q6H
  11. ELIQUIS [Concomitant]
     Active Substance: APIXABAN
     Dosage: 5 MILLIGRAM, BID
  12. VENLAFAXINE [Concomitant]
     Active Substance: VENLAFAXINE HYDROCHLORIDE
     Dosage: 25 MILLIGRAM, BID

REACTIONS (2)
  - Death [Fatal]
  - Adverse event [Unknown]
